FAERS Safety Report 5359130-2 (Version None)
Quarter: 2007Q2

REPORT INFORMATION
  Report Type: 
  Country: None (occurrence: None)
  Receive Date: 20070615
  Receipt Date: 20070604
  Transmission Date: 20071010
  Serious: Yes (Hospitalization)
  Sender: FDA-Public Use
  Company Number: GB-BAUSCH-2007BL000765

PATIENT
  Age: 16 Month
  Sex: Male
  Weight: 7 kg

DRUGS (2)
  1. ATROPINE SULFATE [Suspect]
     Indication: STRABISMUS
     Route: 047
     Dates: start: 20070110, end: 20070220
  2. LACRI-LUBE [Concomitant]
     Indication: KERATOCONJUNCTIVITIS SICCA
     Route: 047
     Dates: start: 20070101

REACTIONS (2)
  - CONSTIPATION [None]
  - URINARY RETENTION [None]
